FAERS Safety Report 8314867-8 (Version None)
Quarter: 2012Q2

REPORT INFORMATION
  Report Type: 
  Country: None (occurrence: None)
  Receive Date: 20120426
  Receipt Date: 20120409
  Transmission Date: 20120825
  Serious: No
  Sender: FDA-Public Use
  Company Number: US-MYLANLABS-2012S1004752

PATIENT
  Age: 56 Year
  Sex: Female

DRUGS (13)
  1. VITAMIN B-12 [Concomitant]
  2. PHENERGAN HCL [Concomitant]
     Indication: NAUSEA
  3. OXYCODONE HCL [Concomitant]
     Indication: PAIN
     Dosage: 5MG/325MG
  4. ATIVAN [Concomitant]
  5. VITAMIN D [Concomitant]
  6. ARIMIDEX [Concomitant]
  7. CALCIUM CARBONATE [Concomitant]
  8. MULTI-VITAMINS [Concomitant]
  9. HYDROCHLOROTHIAZIDE [Concomitant]
  10. CLONIDINE [Suspect]
     Indication: BLOOD PRESSURE INCREASED
     Dosage: CHANGES EVERY WEEK
     Route: 062
     Dates: start: 20111201
  11. DIMETAPP [Concomitant]
     Dosage: X 30 DAYS
  12. ATIVAN [Concomitant]
     Indication: NAUSEA
  13. B6 [Concomitant]

REACTIONS (1)
  - APPLICATION SITE RASH [None]
